FAERS Safety Report 8000773-5 (Version None)
Quarter: 2011Q4

REPORT INFORMATION
  Report Type: 
  Country: None (occurrence: None)
  Receive Date: 20111222
  Receipt Date: 20111212
  Transmission Date: 20120403
  Serious: Yes (Other)
  Sender: FDA-Public Use
  Company Number: US-JNJFOC-20111005478

PATIENT
  Sex: Female
  Weight: 61.51 kg

DRUGS (31)
  1. REMICADE [Suspect]
     Route: 042
     Dates: start: 20110428
  2. REMICADE [Suspect]
     Route: 042
     Dates: start: 20111012
  3. REMICADE [Suspect]
     Route: 042
     Dates: start: 20100916
  4. REMICADE [Suspect]
     Dosage: 5MG/KG
     Route: 042
     Dates: start: 20090901
  5. SOLU-MEDROL [Concomitant]
     Indication: PREMEDICATION
     Route: 042
  6. ASACOL [Concomitant]
     Dosage: 2 TABLETS THREE TIMES A DAY
     Route: 048
     Dates: start: 20100125
  7. PRASTERONE [Concomitant]
     Dosage: 25MG-52MG
     Route: 065
     Dates: start: 20100520
  8. REMICADE [Suspect]
     Route: 042
     Dates: start: 20110817
  9. REMICADE [Suspect]
     Route: 042
     Dates: start: 20111012, end: 20111012
  10. ASACOL [Concomitant]
     Route: 048
     Dates: start: 20101115
  11. VITAMINE E [Concomitant]
     Dosage: 800 UNIT
     Route: 048
     Dates: start: 20000101
  12. REMICADE [Suspect]
     Route: 042
     Dates: start: 20110620
  13. PREGNENOLONE [Concomitant]
     Route: 065
     Dates: start: 20101111
  14. MAGNEBIND [Concomitant]
     Dosage: 200MG-400MG-1MG
     Route: 065
     Dates: start: 20100521
  15. THYROID TAB [Concomitant]
     Route: 048
     Dates: start: 20000101
  16. ASACOL [Concomitant]
     Dosage: 1 TABLET THREE TIMES A DAY
     Route: 048
     Dates: start: 20110421
  17. LIALDA [Concomitant]
     Route: 048
     Dates: start: 20110424
  18. HYDROXYZINE HCL [Concomitant]
     Dosage: 2 TABLETS EVERY 12 HOURS
     Route: 048
     Dates: start: 20101101
  19. REMICADE [Suspect]
     Route: 042
     Dates: start: 20100722
  20. BENADRYL [Concomitant]
     Indication: PREMEDICATION
     Route: 048
  21. GLUCOSAMINE SULFATE [Concomitant]
     Route: 065
     Dates: start: 20100525
  22. ALL OTHER THERAPEUTIC PRODUCTS [Concomitant]
     Route: 065
     Dates: start: 20091125
  23. REMICADE [Suspect]
     Route: 042
     Dates: start: 20100527
  24. REMICADE [Suspect]
     Route: 042
     Dates: start: 20100401
  25. ASACOL [Concomitant]
     Dosage: 2 TABLETS 3 TIMES A DAY
     Route: 048
     Dates: start: 20101215
  26. ASACOL [Concomitant]
     Dosage: 1 TABLET (0.8G) 3 TIMES A DAY
     Route: 048
     Dates: start: 20110712
  27. HYDROXYZINE HCL [Concomitant]
     Dosage: 2-4 TABLETS (50MG) 2 TIMES EVERY DAY
     Route: 048
     Dates: start: 20091020
  28. REMICADE [Suspect]
     Route: 042
     Dates: start: 20110303
  29. VITAMIN C [Concomitant]
     Route: 048
     Dates: start: 20000101
  30. REMICADE [Suspect]
     Indication: COLITIS ULCERATIVE
     Route: 042
     Dates: start: 20101111
  31. REMICADE [Suspect]
     Route: 042
     Dates: start: 20110106

REACTIONS (6)
  - ADVERSE EVENT [None]
  - THROAT TIGHTNESS [None]
  - SKIN TIGHTNESS [None]
  - INFUSION RELATED REACTION [None]
  - ERYTHEMA [None]
  - OEDEMA PERIPHERAL [None]
